FAERS Safety Report 11016694 (Version 2)
Quarter: 2015Q2

REPORT INFORMATION
  Report Type: Spontaneous
  Country: US (occurrence: US)
  Receive Date: 20150412
  Receipt Date: 20150525
  Transmission Date: 20150821
  Serious: No
  Sender: FDA-Public Use
  Company Number: US-JNJFOC-20130604915

PATIENT
  Age: 34 Year
  Sex: Female
  Weight: 64.41 kg

DRUGS (1)
  1. ORTHO MICRONOR [Suspect]
     Active Substance: NORETHINDRONE
     Indication: CONTRACEPTION
     Route: 048
     Dates: start: 2011

REACTIONS (2)
  - Drug dose omission [Recovered/Resolved]
  - Wrong technique in drug usage process [Unknown]

NARRATIVE: CASE EVENT DATE: 20130604
